FAERS Safety Report 17194599 (Version 1)
Quarter: 2019Q4

REPORT INFORMATION
  Report Type: Spontaneous
  Country: CA (occurrence: CA)
  Receive Date: 20191224
  Receipt Date: 20191224
  Transmission Date: 20200122
  Serious: Yes (Other)
  Sender: FDA-Public Use
  Company Number: CA-TEVA-2019-CA-1155528

PATIENT
  Age: 70 Year
  Sex: Male
  Weight: 51 kg

DRUGS (3)
  1. KOFFEX DM [Concomitant]
  2. TEVA-CLONIDINE [Suspect]
     Active Substance: CLONIDINE
     Dosage: .15 MILLIGRAM DAILY;
     Route: 048
  3. LORAZEPAM. [Concomitant]
     Active Substance: LORAZEPAM

REACTIONS (4)
  - Oral discomfort [Recovered/Resolved]
  - Irritability [Recovered/Resolved]
  - Tongue discomfort [Recovered/Resolved]
  - Dyspepsia [Recovered/Resolved]
